FAERS Safety Report 4631158-7 (Version None)
Quarter: 2005Q2

REPORT INFORMATION
  Report Type: 
  Country: None (occurrence: None)
  Receive Date: 20050407
  Receipt Date: 20050407
  Transmission Date: 20051028
  Serious: No
  Sender: FDA-Public Use
  Company Number: None

PATIENT
  Sex: Male
  Weight: 72 kg

DRUGS (2)
  1. CYTARABINE [Suspect]
     Dosage: SEE IMAGE
     Route: 042
     Dates: start: 20050203
  2. DAUNORUBICIN HCL [Suspect]
     Dosage: SEE IMAGE

REACTIONS (4)
  - ANAEMIA [None]
  - CHEST PAIN [None]
  - NAUSEA [None]
  - VOMITING [None]
